FAERS Safety Report 7434961-3 (Version None)
Quarter: 2011Q2

REPORT INFORMATION
  Report Type: 
  Country: None (occurrence: None)
  Receive Date: 20110425
  Receipt Date: 20110415
  Transmission Date: 20111010
  Serious: Yes (Other)
  Sender: FDA-Public Use
  Company Number: BR-ROCHE-702040

PATIENT
  Sex: Female
  Weight: 62 kg

DRUGS (2)
  1. ROACUTAN [Suspect]
     Route: 048
     Dates: start: 20090701, end: 20100101
  2. ROACUTAN [Suspect]
     Indication: ACNE
     Route: 048
     Dates: start: 20080101, end: 20080101

REACTIONS (1)
  - ABORTION SPONTANEOUS [None]
